FAERS Safety Report 20214294 (Version 8)
Quarter: 2022Q1

REPORT INFORMATION
  Report Type: Report from Study
  Country: FR (occurrence: FR)
  Receive Date: 20211221
  Receipt Date: 20220314
  Transmission Date: 20220423
  Serious: Yes (Hospitalization, Other)
  Sender: FDA-Public Use
  Company Number: FR-SERVIER-S21013754

PATIENT

DRUGS (9)
  1. PEGASPARGASE [Suspect]
     Active Substance: PEGASPARGASE
     Indication: Acute lymphocytic leukaemia
     Dosage: 1200 IU, ON D15, D43
     Route: 042
     Dates: start: 20211015, end: 20211118
  2. VINCRISTINE SULFATE [Suspect]
     Active Substance: VINCRISTINE SULFATE
     Indication: Acute lymphocytic leukaemia
     Dosage: 1.4 MG, D15, D22, D43, D50
     Route: 042
     Dates: start: 20211015, end: 20211124
  3. AMBISOME [Suspect]
     Active Substance: AMPHOTERICIN B
     Indication: Prophylaxis
     Dosage: UNK
     Route: 065
  4. CYCLOPHOSPHAMIDE [Suspect]
     Active Substance: CYCLOPHOSPHAMIDE
     Indication: Acute lymphocytic leukaemia
     Dosage: 960 MG, D1, D29
     Route: 042
     Dates: start: 20211001, end: 20211102
  5. CYTARABINE [Suspect]
     Active Substance: CYTARABINE
     Indication: Acute lymphocytic leukaemia
     Dosage: 73 MG, D3 TO D6, D10-D13, D31 TO D34, D38 TO D42
     Route: 042
     Dates: start: 20211004, end: 20211112
  6. CYTARABINE [Suspect]
     Active Substance: CYTARABINE
     Dosage: 30 MG ON D3 AND D31
     Route: 037
     Dates: start: 20211004, end: 20211104
  7. HYDROCORTISONE [Suspect]
     Active Substance: HYDROCORTISONE
     Indication: Acute lymphocytic leukaemia
     Dosage: 15 MG ON D3 AND D31
     Route: 037
     Dates: start: 20211004, end: 20211104
  8. METHOTREXATE [Suspect]
     Active Substance: METHOTREXATE
     Indication: Acute lymphocytic leukaemia
     Dosage: 12 MG ON D3 AND D31
     Route: 037
     Dates: start: 20211004, end: 20211104
  9. MERCAPTOPURINE [Concomitant]
     Active Substance: MERCAPTOPURINE
     Indication: Acute lymphocytic leukaemia
     Dosage: 50 MG, D1 TO D14, D29 TO D42
     Route: 048
     Dates: start: 20211001, end: 20211115

REACTIONS (6)
  - Hypertension [Recovering/Resolving]
  - Fungal infection [Recovering/Resolving]
  - Pancreatitis [Recovered/Resolved]
  - Escherichia sepsis [Recovered/Resolved]
  - Cholestasis [Recovered/Resolved]
  - Pancreatitis [Recovered/Resolved]

NARRATIVE: CASE EVENT DATE: 20211026
